FAERS Safety Report 26019719 (Version 1)
Quarter: 2025Q4

REPORT INFORMATION
  Report Type: Spontaneous
  Country: US (occurrence: US)
  Receive Date: 20251110
  Receipt Date: 20251110
  Transmission Date: 20260118
  Serious: No
  Sender: GALPHARM INTERNATIONAL
  Company Number: US-PERRIGO-24US009736

PATIENT
  Sex: Male
  Weight: 75.283 kg

DRUGS (3)
  1. POLYETHYLENE GLYCOL 3350 [Suspect]
     Active Substance: POLYETHYLENE GLYCOL 3350
     Indication: Constipation
     Dosage: 1 TSP TO 1 HEAPING TSP, QD
     Route: 048
     Dates: start: 2024
  2. VITAMIN C [Concomitant]
     Active Substance: ASCORBIC ACID
     Indication: Nasopharyngitis
     Dosage: 1000 MG, PRN
     Route: 065
     Dates: start: 20240924
  3. VITAMINS [Concomitant]
     Active Substance: VITAMINS
     Indication: Supplementation therapy
     Dosage: UNK
     Route: 065
     Dates: start: 2014

REACTIONS (2)
  - Underdose [Unknown]
  - Incorrect product administration duration [Unknown]

NARRATIVE: CASE EVENT DATE: 20240101
